FAERS Safety Report 6219558-5 (Version None)
Quarter: 2009Q2

REPORT INFORMATION
  Report Type: 
  Country: None (occurrence: None)
  Receive Date: 20090605
  Receipt Date: 20090528
  Transmission Date: 20091009
  Serious: Yes (Death, Hospitalization, Disabling)
  Sender: FDA-Public Use
  Company Number: SPV1-2009-00952

PATIENT
  Age: 30 Year
  Sex: Male

DRUGS (10)
  1. ELAPRASE [Suspect]
     Indication: MUCOPOLYSACCHARIDOSIS II
     Dosage: 1X/WEEK, IV DRIP
     Route: 041
  2. ZOFRAN /00955301/ (ONDANSETRON) [Concomitant]
  3. ZOSYN [Concomitant]
  4. ZINC (ZINC) [Concomitant]
  5. VANCOMYCIN [Concomitant]
  6. NEXIUM [Concomitant]
  7. FENTANYL-100 [Concomitant]
  8. INSULIN (INSULIN) [Concomitant]
  9. HEPARIN [Concomitant]
  10. ATIVAN [Concomitant]

REACTIONS (3)
  - PNEUMONIA [None]
  - POST PROCEDURAL COMPLICATION [None]
  - SPINAL DECOMPRESSION [None]
